FAERS Safety Report 19069064 (Version 2)
Quarter: 2021Q2

REPORT INFORMATION
  Report Type: Report from Study
  Country: CA (occurrence: CA)
  Receive Date: 20210329
  Receipt Date: 20210521
  Transmission Date: 20210717
  Serious: Yes (Hospitalization)
  Sender: FDA-Public Use
  Company Number: CA-OTSUKA-2021_009963

PATIENT
  Sex: Male

DRUGS (2)
  1. ASTX727 [Suspect]
     Active Substance: CEDAZURIDINE\DECITABINE
     Indication: MYELODYSPLASTIC SYNDROME
  2. ASTX727 [Suspect]
     Active Substance: CEDAZURIDINE\DECITABINE
     Indication: CHRONIC MYELOMONOCYTIC LEUKAEMIA
     Dosage: (35 MG DECITABINE AND 100 MG CEDAZURIDINE) DAILY FOR 5 DAYS 1?5 IN A 28 DAY CYCLE
     Route: 065
     Dates: start: 20210226

REACTIONS (1)
  - Platelet count decreased [Unknown]
